FAERS Safety Report 14962662 (Version 1)
Quarter: 2018Q2

REPORT INFORMATION
  Report Type: Spontaneous
  Country: US (occurrence: US)
  Receive Date: 20180510
  Receipt Date: 20180510
  Transmission Date: 20180711
  Serious: Yes (Other)
  Sender: FDA-Public Use
  Company Number: None

PATIENT
  Age: 52 Year
  Sex: Female
  Weight: 88 kg

DRUGS (2)
  1. ESTRADIOL TABLETS, USP [Suspect]
     Active Substance: ESTRADIOL
     Indication: MENOPAUSAL SYMPTOMS
     Route: 048
     Dates: start: 2005
  2. PREMARIN [Suspect]
     Active Substance: ESTROGENS, CONJUGATED
     Indication: MENOPAUSAL SYMPTOMS
     Route: 048
     Dates: start: 2005

REACTIONS (4)
  - Menometrorrhagia [None]
  - Abdominal pain [None]
  - Diarrhoea [None]
  - Drug ineffective [None]

NARRATIVE: CASE EVENT DATE: 2005
